FAERS Safety Report 8929274 (Version 1)
Quarter: 2012Q4

REPORT INFORMATION
  Report Type: Spontaneous
  Country: GB (occurrence: None)
  Receive Date: 20121119
  Receipt Date: 20121119
  Transmission Date: 20130627
  Serious: Yes (Other)
  Sender: FDA-Public Use
  Company Number: AUR-APL-2012-04821

PATIENT
  Sex: Male

DRUGS (3)
  1. RIBAVIRIN [Suspect]
     Indication: CHRONIC HEPATITIS
     Dosage: Unknown
  2. PEGYLATED INTERFERON [Suspect]
     Indication: CHRONIC HEPATITIS
     Dosage: (90 mcg),  Unknown
  3. TELAPREVIR [Suspect]
     Indication: CHRONIC HEPATITIS
     Dosage: Oral
     Route: 048

REACTIONS (3)
  - Platelet count decreased [None]
  - Haemoglobin decreased [None]
  - Viral load increased [None]
